APPROVED DRUG PRODUCT: AMTURNIDE
Active Ingredient: ALISKIREN HEMIFUMARATE; AMLODIPINE BESYLATE; HYDROCHLOROTHIAZIDE
Strength: EQ 300MG BASE;EQ 10MG BASE;12.5MG
Dosage Form/Route: TABLET;ORAL
Application: N200045 | Product #004
Applicant: NOVARTIS PHARMACEUTICALS CORP
Approved: Dec 21, 2010 | RLD: No | RS: No | Type: DISCN